FAERS Safety Report 9475129 (Version 1)
Quarter: 2013Q3

REPORT INFORMATION
  Report Type: Spontaneous
  Country: US (occurrence: None)
  Receive Date: 20130822
  Receipt Date: 20130822
  Transmission Date: 20140515
  Serious: Yes (Life-Threatening, Other)
  Sender: FDA-Public Use
  Company Number: None

PATIENT
  Age: 72 Year
  Sex: Male
  Weight: 77.57 kg

DRUGS (1)
  1. APRISO [Suspect]
     Indication: COLITIS ULCERATIVE
     Dosage: FOUR CAPS IN AM ONCE DAILY TAKEN BY MOUTH
     Route: 048
     Dates: start: 20121001, end: 20130615

REACTIONS (5)
  - Hepatic enzyme increased [None]
  - Colitis ulcerative [None]
  - Condition aggravated [None]
  - Product substitution issue [None]
  - Product quality issue [None]
